FAERS Safety Report 19083088 (Version 1)
Quarter: 2021Q2

REPORT INFORMATION
  Report Type: Spontaneous
  Country: US (occurrence: US)
  Receive Date: 20210401
  Receipt Date: 20210401
  Transmission Date: 20210717
  Serious: No
  Sender: FDA-Public Use
  Company Number: US-SA-2021SA107726

PATIENT
  Age: 14 Year
  Sex: Female
  Weight: 43.9 kg

DRUGS (2)
  1. DUPIXENT [Suspect]
     Active Substance: DUPILUMAB
     Indication: DERMATITIS ATOPIC
     Dosage: 400 MG, 1X
     Dates: start: 20200914, end: 20200914
  2. DUPIXENT [Suspect]
     Active Substance: DUPILUMAB
     Dosage: 200 MG, QOW
     Dates: start: 2020

REACTIONS (3)
  - Rash [Not Recovered/Not Resolved]
  - Skin irritation [Unknown]
  - Therapeutic response decreased [Unknown]
